FAERS Safety Report 20083290 (Version 2)
Quarter: 2021Q4

REPORT INFORMATION
  Report Type: Spontaneous
  Country: DE (occurrence: DE)
  Receive Date: 20211117
  Receipt Date: 20211129
  Transmission Date: 20220303
  Serious: Yes (Hospitalization, Other)
  Sender: FDA-Public Use
  Company Number: DE-ADRED-07117-01

PATIENT
  Age: 82 Year
  Sex: Male
  Weight: 82 kg

DRUGS (11)
  1. TORSEMIDE [Interacting]
     Active Substance: TORSEMIDE
     Indication: Product used for unknown indication
     Dosage: 10 MILLIGRAM, QD, (10 MG, 1-0-0-0, TABLETTEN)
     Route: 048
  2. CANDESARTAN [Interacting]
     Active Substance: CANDESARTAN
     Indication: Product used for unknown indication
     Dosage: 16 MILLIGRAM, QD, (16 MG, 0-0-1-0, TABLETTEN)
     Route: 048
  3. ALLOPURINOL [Interacting]
     Active Substance: ALLOPURINOL
     Indication: Product used for unknown indication
     Dosage: 100 MILLIGRAM, QD, (100 MG, 0-0-1-0, TABLETTEN)
     Route: 048
  4. SITAGLIPTIN [Interacting]
     Active Substance: SITAGLIPTIN
     Indication: Product used for unknown indication
     Dosage: 50 MILLIGRAM, BID, (50 MG, 1-0-1-0, TABLETTEN)
     Route: 048
  5. EMPAGLIFLOZIN [Interacting]
     Active Substance: EMPAGLIFLOZIN
     Indication: Product used for unknown indication
     Dosage: 10 MILLIGRAM, QD, (10 MG, 0-1-0-0, TABLETTEN)
     Route: 048
  6. ATORVASTATIN [Concomitant]
     Active Substance: ATORVASTATIN
     Dosage: 40 MILLIGRAM, QD, ((40 MG, 0-0-1-0, TABLETTEN))
     Route: 048
  7. FOLIC ACID [Concomitant]
     Active Substance: FOLIC ACID
     Dosage: 5 MILLIGRAM, QD, (5 MG, 1-0-0-0, TABLETTEN)
     Route: 048
  8. TAMSULOSIN [Concomitant]
     Active Substance: TAMSULOSIN
     Dosage: 0.4 MILLIGRAM, QD, (0.4 MG, 0-0-1-0, RETARD-TABLETTEN)
     Route: 048
  9. UMECLIDINIUM BROMIDE\VILANTEROL TRIFENATATE [Concomitant]
     Active Substance: UMECLIDINIUM BROMIDE\VILANTEROL TRIFENATATE
     Dosage: UNK UNK, QD, (1-0-0-0)
     Route: 055
  10. METOPROLOL [Concomitant]
     Active Substance: METOPROLOL
     Dosage: 47.5 MILLIGRAM, QD, (47.5 MG, 1-0-0-0, RETARD-TABLETTEN)
     Route: 048
  11. OMEPRAZOL                          /00661201/ [Concomitant]
     Dosage: 20 MILLIGRAM
     Route: 048

REACTIONS (8)
  - Product prescribing error [Unknown]
  - Product monitoring error [Unknown]
  - Renal failure [Unknown]
  - Metabolic acidosis [Unknown]
  - Labelled drug-drug interaction medication error [Unknown]
  - Hyperkalaemia [Unknown]
  - Medication error [Unknown]
  - Diabetic nephropathy [Unknown]
